FAERS Safety Report 18535789 (Version 1)
Quarter: 2020Q4

REPORT INFORMATION
  Report Type: Spontaneous
  Country: PH (occurrence: PH)
  Receive Date: 20201123
  Receipt Date: 20201123
  Transmission Date: 20210114
  Serious: Yes (Death, Hospitalization, Other)
  Sender: FDA-Public Use
  Company Number: PH-ASTRAZENECA-2020SF53828

PATIENT
  Age: 970 Month
  Sex: Female

DRUGS (1)
  1. TAGRISSO [Suspect]
     Active Substance: OSIMERTINIB
     Indication: LUNG NEOPLASM MALIGNANT
     Dosage: 80.0MG UNKNOWN
     Route: 048
     Dates: start: 201809, end: 202010

REACTIONS (3)
  - Metastases to central nervous system [Fatal]
  - Malignant neoplasm progression [Unknown]
  - Hydrocephalus [Unknown]

NARRATIVE: CASE EVENT DATE: 202009
